FAERS Safety Report 9050425 (Version 2)
Quarter: 2013Q1

REPORT INFORMATION
  Report Type: Spontaneous
  Country: US (occurrence: US)
  Receive Date: 20130205
  Receipt Date: 20130221
  Transmission Date: 20140127
  Serious: No
  Sender: FDA-Public Use
  Company Number: US-PFIZER INC-2013042171

PATIENT
  Age: 85 Year
  Sex: Female
  Weight: 56.69 kg

DRUGS (2)
  1. LATANOPROST [Suspect]
     Indication: GLAUCOMA
     Dosage: 1 GTT IN EACH EYE DAILY
     Route: 047
  2. NEXIUM [Concomitant]
     Dosage: 40 MG, 1X/DAY

REACTIONS (4)
  - Hypersensitivity [Unknown]
  - Erythema of eyelid [Unknown]
  - Eyelid pain [Unknown]
  - Eye irritation [Unknown]
